FAERS Safety Report 6218992-7 (Version None)
Quarter: 2009Q2

REPORT INFORMATION
  Report Type: 
  Country: None (occurrence: None)
  Receive Date: 20090608
  Receipt Date: 20090608
  Transmission Date: 20091009
  Serious: Yes (Hospitalization)
  Sender: FDA-Public Use
  Company Number: PHHO2008DK07238

PATIENT
  Sex: Female
  Weight: 83.3 kg

DRUGS (4)
  1. CIBADREX T29368+ [Suspect]
     Indication: HYPERTENSION
     Dosage: LEVEL 1
     Route: 048
     Dates: start: 20040519
  2. CIBADREX T29368+ [Suspect]
     Dosage: LEVEL 3
  3. MAGNYL ^SAD^ [Concomitant]
  4. DOLAL [Concomitant]

REACTIONS (5)
  - ARTHRALGIA [None]
  - BONE GRAFT [None]
  - CONCOMITANT DISEASE PROGRESSION [None]
  - OSTEOARTHRITIS [None]
  - RHEUMATOID ARTHRITIS [None]
